FAERS Safety Report 4479468-0 (Version None)
Quarter: 2004Q4

REPORT INFORMATION
  Report Type: 
  Country: None (occurrence: None)
  Receive Date: 20041020
  Receipt Date: 20040527
  Transmission Date: 20050328
  Serious: Yes (Hospitalization)
  Sender: FDA-Public Use
  Company Number: DE-BRISTOL-MYERS SQUIBB COMPANY-12609319

PATIENT
  Age: 65 Year
  Sex: Female

DRUGS (2)
  1. PRAVASIN [Suspect]
     Indication: HYPERCHOLESTEROLAEMIA
     Route: 048
     Dates: end: 20040201
  2. ASPIRIN [Concomitant]
     Indication: PERIPHERAL OCCLUSIVE DISEASE
     Route: 048
     Dates: end: 20040401

REACTIONS (10)
  - CHOLANGITIS CHRONIC [None]
  - CHOLESTASIS [None]
  - COLON ADENOMA [None]
  - DRUG INEFFECTIVE [None]
  - DRUG TOXICITY [None]
  - DUODENAL ULCER [None]
  - HELICOBACTER GASTRITIS [None]
  - HEPATOMEGALY [None]
  - HYPERLIPIDAEMIA [None]
  - WEIGHT DECREASED [None]
